FAERS Safety Report 7810717-4 (Version None)
Quarter: 2011Q4

REPORT INFORMATION
  Report Type: 
  Country: None (occurrence: None)
  Receive Date: 20111006
  Receipt Date: 20110927
  Transmission Date: 20120403
  Serious: Yes (Death)
  Sender: FDA-Public Use
  Company Number: DKLU1073241

PATIENT
  Age: 23 Year
  Sex: Male
  Weight: 170.6 kg

DRUGS (1)
  1. DESOXYN [Suspect]
     Indication: DRUG ABUSE

REACTIONS (12)
  - CARDIAC ARREST [None]
  - PLEURAL EFFUSION [None]
  - PULMONARY OEDEMA [None]
  - SINUS TACHYCARDIA [None]
  - UROSEPSIS [None]
  - DRUG ABUSE [None]
  - NEPHROLITHIASIS [None]
  - CARDIAC CIRRHOSIS [None]
  - HYPOTENSION [None]
  - CARDIAC FAILURE [None]
  - CARDIOMEGALY [None]
  - PERICARDIAL EFFUSION [None]
